FAERS Safety Report 5320140-2 (Version None)
Quarter: 2007Q2

REPORT INFORMATION
  Report Type: 
  Country: None (occurrence: None)
  Receive Date: 20070509
  Receipt Date: 20070501
  Transmission Date: 20071010
  Serious: Yes (Other)
  Sender: FDA-Public Use
  Company Number: US-AVENTIS-200713276US

PATIENT
  Age: 73 Year
  Sex: Female

DRUGS (6)
  1. LANTUS [Suspect]
     Indication: DIABETES MELLITUS
     Route: 051
     Dates: start: 20050101
  2. COREG [Concomitant]
     Dosage: DOSE: UNK
  3. NEXIUM [Concomitant]
     Dosage: DOSE: UNK
  4. ENALAPRIL [Concomitant]
     Dosage: DOSE: UNK
  5. VYTORIN [Concomitant]
     Dosage: DOSE: UNK
  6. HUMALOG                            /00030501/ [Concomitant]
     Dosage: DOSE: UNK; FREQUENCY: BEFORE MEALS

REACTIONS (6)
  - BLOOD GLUCOSE DECREASED [None]
  - CONVULSION [None]
  - FALL [None]
  - JOINT SPRAIN [None]
  - LOSS OF CONSCIOUSNESS [None]
  - UPPER LIMB FRACTURE [None]
